FAERS Safety Report 8575992-X (Version None)
Quarter: 2012Q3

REPORT INFORMATION
  Report Type: 
  Country: None (occurrence: None)
  Receive Date: 20120725
  Receipt Date: 20120710
  Transmission Date: 20120928
  Serious: Yes (Other)
  Sender: FDA-Public Use
  Company Number: FK201201971

PATIENT
  Sex: Female

DRUGS (2)
  1. ANTINEOPLASTIC AGENTS (ANTINEOPLASTIC AGENTS) (ANTINEOPLASTIC AGENTS) [Suspect]
     Indication: B PRECURSOR TYPE ACUTE LEUKAEMIA
  2. DOXORUBICIN HCL [Suspect]
     Indication: B PRECURSOR TYPE ACUTE LEUKAEMIA

REACTIONS (4)
  - RESPIRATORY DISORDER [None]
  - ERYTHROLEUKAEMIA [None]
  - CARDIAC DISORDER [None]
  - DISEASE COMPLICATION [None]
